FAERS Safety Report 4334574-6 (Version None)
Quarter: 2004Q1

REPORT INFORMATION
  Report Type: 
  Country: None (occurrence: None)
  Receive Date: 20040329
  Receipt Date: 20031205
  Transmission Date: 20041129
  Serious: No
  Sender: FDA-Public Use
  Company Number: 03P-163-0244240-00

PATIENT
  Sex: Female

DRUGS (12)
  1. HUMIRA [Suspect]
     Indication: RHEUMATOID ARTHRITIS
     Dosage: 40 MG, 1 IN 2 WK, SUBCUTANEOUS
     Route: 058
     Dates: start: 20030501, end: 20031001
  2. METHOTREXATE [Concomitant]
  3. PREDNISONE [Concomitant]
  4. CALCIUM [Concomitant]
  5. FOLIC ACID [Concomitant]
  6. CELECOXIB [Concomitant]
  7. AMLODIPINE [Concomitant]
  8. ATENOLOL [Concomitant]
  9. CONJUGATED ESTROGEN [Concomitant]
  10. MULTI-VITAMINS [Concomitant]
  11. ISONIAZID [Concomitant]
  12. AMITRIPTYLINE HYDROCHLORIDE [Concomitant]

REACTIONS (1)
  - FATIGUE [None]
